FAERS Safety Report 4396142-X (Version None)
Quarter: 2004Q3

REPORT INFORMATION
  Report Type: 
  Country: None (occurrence: None)
  Receive Date: 20040706
  Receipt Date: 20040617
  Transmission Date: 20050211
  Serious: Yes (Life-Threatening, Hospitalization)
  Sender: FDA-Public Use
  Company Number: B0246587A

PATIENT
  Age: 28 Year
  Sex: Female

DRUGS (5)
  1. PAXIL [Suspect]
     Indication: BULIMIA NERVOSA
     Dosage: ORAL
     Route: 048
     Dates: start: 20001201, end: 20001201
  2. PAXIL [Suspect]
     Indication: BULIMIA NERVOSA
     Dosage: ORAL
     Route: 048
     Dates: start: 20010101, end: 20010101
  3. PAXIL [Suspect]
     Indication: BULIMIA NERVOSA
     Dosage: ORAL
     Route: 048
     Dates: start: 20001204, end: 20001218
  4. PAXIL [Suspect]
     Indication: BULIMIA NERVOSA
     Dosage: ORAL
     Route: 048
     Dates: start: 20001219, end: 20010112
  5. PAXIL [Suspect]
     Indication: BULIMIA NERVOSA
     Dosage: ORAL
     Route: 048
     Dates: start: 20010113, end: 20010131

REACTIONS (17)
  - ABNORMAL BEHAVIOUR [None]
  - AGGRESSION [None]
  - ALCOHOLISM [None]
  - CONFUSIONAL STATE [None]
  - DISSOCIATIVE AMNESIA [None]
  - HALLUCINATION, AUDITORY [None]
  - HALLUCINATION, VISUAL [None]
  - HEAD BANGING [None]
  - INAPPROPRIATE AFFECT [None]
  - OVERDOSE [None]
  - PHYSICAL ABUSE [None]
  - RELATIONSHIP BREAKDOWN [None]
  - RESTLESSNESS [None]
  - SELF INJURIOUS BEHAVIOUR [None]
  - SOLILOQUY [None]
  - TREATMENT NONCOMPLIANCE [None]
  - VERBAL ABUSE [None]
